FAERS Safety Report 13180195 (Version 3)
Quarter: 2017Q1

REPORT INFORMATION
  Report Type: Spontaneous
  Country: DK (occurrence: DK)
  Receive Date: 20170202
  Receipt Date: 20170317
  Transmission Date: 20170428
  Serious: Yes (Disabling)
  Sender: FDA-Public Use
  Company Number: DK-ABBVIE-17P-044-1860668-00

PATIENT
  Sex: Male

DRUGS (5)
  1. ZYPREXA [Concomitant]
     Active Substance: OLANZAPINE
     Indication: PRODUCT USED FOR UNKNOWN INDICATION
     Dates: start: 201611
  2. DEPRAKINE RETARD [Suspect]
     Active Substance: VALPROIC ACID
     Indication: MANIA
     Route: 048
     Dates: start: 20160401, end: 201608
  3. DEPRAKINE RETARD [Suspect]
     Active Substance: VALPROIC ACID
     Route: 048
     Dates: start: 201608, end: 201701
  4. DEPRAKINE RETARD [Suspect]
     Active Substance: VALPROIC ACID
     Route: 048
     Dates: start: 201701
  5. QUETIAPINE. [Concomitant]
     Active Substance: QUETIAPINE
     Indication: PRODUCT USED FOR UNKNOWN INDICATION

REACTIONS (10)
  - Headache [Recovered/Resolved]
  - Confusional state [Recovered/Resolved]
  - Drug level fluctuating [Recovered/Resolved]
  - Anticonvulsant drug level increased [Recovered/Resolved]
  - Speech disorder [Recovered/Resolved]
  - Dementia [Recovered/Resolved]
  - Overdose [Recovered/Resolved]
  - Mental disability [Recovered/Resolved]
  - Disability [Recovered/Resolved]
  - Drug administration error [Recovered/Resolved]

NARRATIVE: CASE EVENT DATE: 2016
